FAERS Safety Report 22152625 (Version 1)
Quarter: 2023Q1

REPORT INFORMATION
  Report Type: Spontaneous
  Country: US (occurrence: US)
  Receive Date: 20230329
  Receipt Date: 20230329
  Transmission Date: 20230417
  Serious: No
  Sender: FDA-Public Use
  Company Number: US-NOVAST LABORATORIES INC.-2022NOV000282

PATIENT

DRUGS (1)
  1. METOPROLOL SUCCINATE [Suspect]
     Active Substance: METOPROLOL SUCCINATE
     Indication: Product used for unknown indication
     Dosage: UNK
     Route: 065

REACTIONS (7)
  - Gait inability [Unknown]
  - Limb discomfort [Unknown]
  - Repetitive strain injury [Unknown]
  - Complex regional pain syndrome [Unknown]
  - Muscular weakness [Unknown]
  - Pain in extremity [Unknown]
  - Poor peripheral circulation [Unknown]
